FAERS Safety Report 7763316-7 (Version None)
Quarter: 2011Q3

REPORT INFORMATION
  Report Type: 
  Country: None (occurrence: None)
  Receive Date: 20110920
  Receipt Date: 20110505
  Transmission Date: 20111222
  Serious: No
  Sender: FDA-Public Use
  Company Number: US-BAYER-2011-040932

PATIENT
  Age: 19 Year
  Sex: Male
  Weight: 68 kg

DRUGS (2)
  1. NAPROXEN (ALEVE) [Suspect]
     Dosage: 1 TABLET ONE TIME
     Route: 048
     Dates: start: 20110505
  2. NUMBING AGENT [Concomitant]

REACTIONS (1)
  - THROAT IRRITATION [None]
